FAERS Safety Report 6927746-5 (Version None)
Quarter: 2010Q3

REPORT INFORMATION
  Report Type: 
  Country: None (occurrence: None)
  Receive Date: 20100812
  Receipt Date: 20100809
  Transmission Date: 20110219
  Serious: Yes (Death, Hospitalization)
  Sender: FDA-Public Use
  Company Number: 2010SP041748

PATIENT
  Age: 60 Year
  Sex: Female
  Weight: 64.0479 kg

DRUGS (13)
  1. TEMOZOLOMIDE [Suspect]
     Indication: MYELOMA RECURRENCE
     Dosage: 245 MG;QD;PO
     Route: 048
     Dates: start: 20100722, end: 20100728
  2. ABT-888 [Suspect]
     Indication: MYELOMA RECURRENCE
     Dosage: 20 MG;BID;PO;  40 MG;BID;PO
     Route: 048
     Dates: start: 20100720, end: 20100720
  3. ABT-888 [Suspect]
     Indication: MYELOMA RECURRENCE
     Dosage: 20 MG;BID;PO;  40 MG;BID;PO
     Route: 048
     Dates: start: 20100723, end: 20100729
  4. ACYCLOVIR [Concomitant]
  5. ALLOPURINOL [Concomitant]
  6. AMICAR [Concomitant]
  7. AZTREONAM [Concomitant]
  8. CARVEDILOL [Concomitant]
  9. MOXIFLOXACIN [Concomitant]
  10. PANTOPRAZOLE [Concomitant]
  11. PAXIL [Concomitant]
  12. VANCOMYCIN [Concomitant]
  13. PLATELETS [Concomitant]

REACTIONS (8)
  - ACUTE MYELOID LEUKAEMIA [None]
  - CEREBRAL HAEMORRHAGE [None]
  - DEPRESSED LEVEL OF CONSCIOUSNESS [None]
  - HYPOXIA [None]
  - MALIGNANT NEOPLASM PROGRESSION [None]
  - MENTAL STATUS CHANGES [None]
  - PNEUMONIA [None]
  - THROMBOCYTOPENIA [None]
